FAERS Safety Report 12156209 (Version 1)
Quarter: 2016Q1

REPORT INFORMATION
  Report Type: Spontaneous
  Country: ES (occurrence: ES)
  Receive Date: 20160307
  Receipt Date: 20160307
  Transmission Date: 20160526
  Serious: Yes (Hospitalization)
  Sender: FDA-Public Use
  Company Number: ES-MYLANLABS-2016M1009803

PATIENT

DRUGS (2)
  1. MESALAZINE [Suspect]
     Active Substance: MESALAMINE
     Indication: CROHN^S DISEASE
     Dosage: 1G EVERY 12 HOURS
     Route: 065
  2. BUDESONIDE. [Concomitant]
     Active Substance: BUDESONIDE
     Indication: CROHN^S DISEASE
     Dosage: 3 MG, QD
     Route: 065

REACTIONS (3)
  - Bundle branch block right [Recovered/Resolved]
  - Toxicity to various agents [Recovered/Resolved]
  - Myocarditis [Recovered/Resolved]
